FAERS Safety Report 11795369 (Version 1)
Quarter: 2015Q4

REPORT INFORMATION
  Report Type: Spontaneous
  Country: US (occurrence: US)
  Receive Date: 20151202
  Receipt Date: 20151202
  Transmission Date: 20160305
  Serious: Yes (Other)
  Sender: FDA-Public Use
  Company Number: US-UNITED THERAPEUTICS-UNT-2015-014665

PATIENT
  Age: 39 Year
  Sex: Female
  Weight: 99.77 kg

DRUGS (3)
  1. VELETRI [Suspect]
     Active Substance: EPOPROSTENOL
     Indication: PRODUCT USED FOR UNKNOWN INDICATION
     Dosage: 0.125 ?G/KG/MIN
     Route: 065
  2. TRACLEER [Concomitant]
     Active Substance: BOSENTAN
     Indication: PRODUCT USED FOR UNKNOWN INDICATION
     Route: 065
  3. REMODULIN [Suspect]
     Active Substance: TREPROSTINIL
     Indication: PULMONARY HYPERTENSION
     Dosage: 0.14 ?G/KG/MIN, CONTINUING
     Route: 041
     Dates: start: 20120501, end: 201511

REACTIONS (4)
  - Vomiting [Unknown]
  - Flushing [Unknown]
  - Cardiomegaly [Unknown]
  - No therapeutic response [Unknown]

NARRATIVE: CASE EVENT DATE: 201511
